FAERS Safety Report 14304450 (Version 3)
Quarter: 2018Q1

REPORT INFORMATION
  Report Type: Spontaneous
  Country: IT (occurrence: IT)
  Receive Date: 20171219
  Receipt Date: 20180216
  Transmission Date: 20180509
  Serious: Yes (Hospitalization)
  Sender: FDA-Public Use
  Company Number: PHHY2017IT185351

PATIENT
  Age: 48 Year
  Sex: Female

DRUGS (5)
  1. GILENYA [Suspect]
     Active Substance: FINGOLIMOD HYDROCHLORIDE
     Indication: RELAPSING-REMITTING MULTIPLE SCLEROSIS
     Dosage: 0.5 MG, QD
     Route: 065
     Dates: start: 20151009, end: 20171129
  2. IRON [Concomitant]
     Active Substance: IRON
     Indication: ANAEMIA
     Dosage: 105 MG, QD
     Route: 048
  3. PRACTIL [Concomitant]
     Indication: OVARIAN CYST
     Dosage: 1 DF, QD .15 MCG/0.03 MCG, CYCLIC 21 DAYS
     Route: 048
  4. BIOTINA [Concomitant]
     Indication: VITAMIN B COMPLEX DEFICIENCY
     Route: 065
  5. FERTIFOL [Concomitant]
     Active Substance: FOLIC ACID
     Indication: ANAEMIA
     Dosage: 400 UG, QD
     Route: 048

REACTIONS (1)
  - Malignant melanoma [Unknown]

NARRATIVE: CASE EVENT DATE: 20171120
